APPROVED DRUG PRODUCT: OXYBUTYNIN CHLORIDE
Active Ingredient: OXYBUTYNIN CHLORIDE
Strength: 5MG
Dosage Form/Route: TABLET;ORAL
Application: A072485 | Product #001
Applicant: WATSON LABORATORIES INC
Approved: Apr 19, 1989 | RLD: No | RS: No | Type: DISCN